APPROVED DRUG PRODUCT: LEVOFLOXACIN
Active Ingredient: LEVOFLOXACIN
Strength: 500MG
Dosage Form/Route: TABLET;ORAL
Application: A204968 | Product #002 | TE Code: AB
Applicant: HEC PHARM USA INC
Approved: Feb 5, 2019 | RLD: No | RS: No | Type: RX